FAERS Safety Report 5506005-1 (Version None)
Quarter: 2007Q4

REPORT INFORMATION
  Report Type: 
  Country: None (occurrence: None)
  Receive Date: 20071102
  Receipt Date: 20071102
  Transmission Date: 20080405
  Serious: Yes (Hospitalization)
  Sender: FDA-Public Use
  Company Number: None

PATIENT
  Age: 61 Year
  Sex: Male
  Weight: 82.2 kg

DRUGS (6)
  1. PEMETREXED [Suspect]
     Indication: LUNG NEOPLASM MALIGNANT
     Dosage: 500MG/M2 EVERY 21 DAYS IVPB
     Route: 040
     Dates: start: 20070904
  2. PEMETREXED [Suspect]
     Indication: LUNG NEOPLASM MALIGNANT
     Dosage: 500MG/M2 EVERY 21 DAYS IVPB
     Route: 040
     Dates: start: 20071002
  3. PEMETREXED [Suspect]
     Indication: LUNG NEOPLASM MALIGNANT
     Dosage: 500MG/M2 EVERY 21 DAYS IVPB
     Route: 040
     Dates: start: 20071016
  4. CARBOPLATIN [Suspect]
     Indication: LUNG NEOPLASM MALIGNANT
     Dosage: AUC=5 EVERY 21 DAYS IVPB
     Route: 040
     Dates: start: 20070904
  5. CARBOPLATIN [Suspect]
     Indication: LUNG NEOPLASM MALIGNANT
     Dosage: AUC=5 EVERY 21 DAYS IVPB
     Route: 040
     Dates: start: 20071002
  6. CARBOPLATIN [Suspect]
     Indication: LUNG NEOPLASM MALIGNANT
     Dosage: AUC=5 EVERY 21 DAYS IVPB
     Route: 040
     Dates: start: 20071016

REACTIONS (3)
  - MALAISE [None]
  - PANCYTOPENIA [None]
  - RADIATION OESOPHAGITIS [None]
